FAERS Safety Report 8619193-5 (Version None)
Quarter: 2012Q3

REPORT INFORMATION
  Report Type: 
  Country: None (occurrence: None)
  Receive Date: 20120824
  Receipt Date: 20120813
  Transmission Date: 20120928
  Serious: Yes (Hospitalization)
  Sender: FDA-Public Use
  Company Number: FR-CELGENEUS-056-21880-12080067

PATIENT
  Sex: Male

DRUGS (22)
  1. BACTRIM DS [Concomitant]
     Indication: PROPHYLAXIS
     Route: 048
     Dates: start: 20111201
  2. OGAST [Concomitant]
     Route: 048
  3. REVLIMID [Suspect]
     Indication: MULTIPLE MYELOMA
     Dosage: 25 MILLIGRAM
     Route: 048
     Dates: start: 20111201, end: 20120724
  4. DEXAMETHASONE [Suspect]
     Indication: MULTIPLE MYELOMA
     Dosage: 20 MILLIGRAM
     Route: 065
     Dates: start: 20111201
  5. ZOMETA [Concomitant]
     Indication: PROPHYLAXIS
     Route: 041
     Dates: start: 20110101
  6. ZOLPIDEM [Concomitant]
     Indication: INSOMNIA
     Route: 065
  7. ALFUZOSIN HYDROCHLORIDE [Concomitant]
     Route: 065
  8. TERCIAN [Concomitant]
     Indication: INSOMNIA
     Route: 065
  9. TERCIAN [Concomitant]
     Route: 065
  10. REVLIMID [Suspect]
     Dosage: 25 MILLIGRAM
     Route: 048
     Dates: start: 20120808
  11. TERCIAN [Concomitant]
     Route: 065
  12. PHENOXYMETHYL PENICILLIN [Concomitant]
     Indication: PROPHYLAXIS
     Route: 048
     Dates: start: 20111201
  13. LEUCOVORIN CALCIUM [Concomitant]
     Indication: PROPHYLAXIS
     Route: 048
     Dates: start: 20111201
  14. CLONAZEPAM [Concomitant]
     Dosage: 3 DROPS
     Route: 048
     Dates: start: 20120201
  15. LAXATIVES [Concomitant]
     Indication: CONSTIPATION
     Route: 065
  16. BORTEZOMIB [Suspect]
     Indication: MULTIPLE MYELOMA
     Route: 065
     Dates: start: 20111201, end: 20120713
  17. LEXOMIL [Concomitant]
     Indication: INSOMNIA
     Route: 065
  18. VALACYCLOVIR HYDROCHLORIDE [Concomitant]
     Indication: PROPHYLAXIS
     Route: 048
     Dates: start: 20111201
  19. CLONAZEPAM [Concomitant]
     Route: 048
  20. DURAGESIC-100 [Concomitant]
     Route: 048
     Dates: start: 20120424
  21. ACETAMINOPHEN AND CODEINE PHOSPHATE [Concomitant]
     Route: 065
  22. OXYCODONE HYDROCHLORIDE [Concomitant]
     Route: 048

REACTIONS (1)
  - ANXIETY [None]
